FAERS Safety Report 9424523 (Version 1)
Quarter: 2013Q3

REPORT INFORMATION
  Report Type: Spontaneous
  Country: US (occurrence: US)
  Receive Date: 20130729
  Receipt Date: 20130729
  Transmission Date: 20140515
  Serious: Yes (Death)
  Sender: FDA-Public Use
  Company Number: CHPA2013US011904

PATIENT
  Age: 67 Year
  Sex: Male

DRUGS (1)
  1. BENEFIBER UNKNOWN [Suspect]
     Indication: BOWEL MOVEMENT IRREGULARITY

REACTIONS (2)
  - Death [Fatal]
  - Off label use [Unknown]
